FAERS Safety Report 21358003 (Version 1)
Quarter: 2022Q3

REPORT INFORMATION
  Report Type: Report from Study
  Country: DE (occurrence: DE)
  Receive Date: 20220921
  Receipt Date: 20220921
  Transmission Date: 20221026
  Serious: Yes (Hospitalization)
  Sender: FDA-Public Use
  Company Number: DE-EMA-DD-20220901-7180171-111542

PATIENT
  Sex: Female

DRUGS (8)
  1. METHOTREXATE [Suspect]
     Active Substance: METHOTREXATE
     Indication: Rheumatoid arthritis
     Dosage: UNIT DOSE : 15 MG , THERAPY END DATE : ASKU
     Dates: start: 20170801
  2. HYDROXYCHLOROQUINE [Suspect]
     Active Substance: HYDROXYCHLOROQUINE
     Indication: Rheumatoid arthritis
     Dosage: UNIT DOSE : 200 MG , THERAPY END DATE : ASKU
     Dates: start: 20180817
  3. HYDROXYCHLOROQUINE [Suspect]
     Active Substance: HYDROXYCHLOROQUINE
     Dosage: UNIT DOSE : 200 MG , THERAPY END DATE : ASKU
     Dates: start: 20190123
  4. ERELZI [Suspect]
     Active Substance: ETANERCEPT-SZZS
     Indication: Rheumatoid arthritis
     Dosage: UNIT DOSE :50 MG ,DURATION : 4 MONTH , THERAPY END DATE : ASKU
     Dates: start: 202109, end: 202201
  5. SULFASALAZINE [Suspect]
     Active Substance: SULFASALAZINE
     Indication: Rheumatoid arthritis
     Dosage: UNIT DOSE :  500 MG ,  THERAPY END DATE : ASKU
     Dates: start: 20180130
  6. CIMZIA [Suspect]
     Active Substance: CERTOLIZUMAB PEGOL
     Indication: Rheumatoid arthritis
     Dosage: UNIT DOSE : 400 MG , THERAPY END DATE : ASKU
     Dates: start: 201702
  7. CIMZIA [Suspect]
     Active Substance: CERTOLIZUMAB PEGOL
     Dosage: UNIT DOSE : 200 MG
     Dates: start: 20170502, end: 201705
  8. BARICITINIB [Suspect]
     Active Substance: BARICITINIB
     Indication: Rheumatoid arthritis
     Dosage: UNIT DOSE : 2 MG , DURATION : 10 MONTH
     Dates: start: 201912, end: 202010

REACTIONS (8)
  - Intervertebral disc protrusion [Unknown]
  - Hypertensive crisis [Recovered/Resolved]
  - Rheumatoid arthritis [Recovered/Resolved]
  - Radiculopathy [Recovered/Resolved]
  - Chronic obstructive pulmonary disease [Unknown]
  - Chondrocalcinosis pyrophosphate [Unknown]
  - Rash [Unknown]
  - Dyspnoea [Unknown]

NARRATIVE: CASE EVENT DATE: 20171125
